FAERS Safety Report 7676117-5 (Version None)
Quarter: 2011Q3

REPORT INFORMATION
  Report Type: 
  Country: None (occurrence: None)
  Receive Date: 20110805
  Receipt Date: 20110727
  Transmission Date: 20111222
  Serious: Yes (Other)
  Sender: FDA-Public Use
  Company Number: 20110391

PATIENT
  Age: 45 Year
  Sex: Female

DRUGS (5)
  1. DEXAMETHASONE SODIUM PHOSPHATE [Suspect]
     Indication: PLANTAR FASCIITIS
     Dosage: DOSE X 3
     Dates: start: 20110201, end: 20110401
  2. LIDOCAINE HCL [Suspect]
     Indication: PLANTAR FASCIITIS
     Dosage: DOSE X 3
     Route: 042
     Dates: start: 20110201, end: 20110401
  3. DEPO-MEDROL [Suspect]
     Indication: PLANTAR FASCIITIS
     Dosage: DOSE X 2
     Dates: start: 20100201, end: 20100401
  4. CLARITIN [Concomitant]
  5. SINGULAIR [Concomitant]

REACTIONS (6)
  - HYPOAESTHESIA [None]
  - INSOMNIA [None]
  - PARAESTHESIA [None]
  - NERVOUSNESS [None]
  - ANXIETY [None]
  - ALOPECIA [None]
